FAERS Safety Report 10986930 (Version 1)
Quarter: 2015Q2

REPORT INFORMATION
  Report Type: Spontaneous
  Country: GB (occurrence: None)
  Receive Date: 20150402
  Receipt Date: 20150402
  Transmission Date: 20150821
  Serious: Yes (Other)
  Sender: FDA-Public Use
  Company Number: 2803279

PATIENT
  Age: 90 Year
  Sex: 0

DRUGS (2)
  1. PIPERACILLIN AND TAZOBACTAM [Suspect]
     Active Substance: PIPERACILLIN SODIUM\TAZOBACTAM SODIUM
     Indication: PNEUMONIA
     Route: 041
     Dates: start: 20121231, end: 20130103
  2. CLARITHROMYCIN. [Suspect]
     Active Substance: CLARITHROMYCIN
     Indication: PRODUCT USED FOR UNKNOWN INDICATION
     Route: 048

REACTIONS (6)
  - White blood cell count increased [None]
  - Acute kidney injury [None]
  - Clostridium test positive [None]
  - Fall [None]
  - Malaise [None]
  - Confusional state [None]

NARRATIVE: CASE EVENT DATE: 20121214
